FAERS Safety Report 18626091 (Version 1)
Quarter: 2020Q4

REPORT INFORMATION
  Report Type: Spontaneous
  Country: US (occurrence: US)
  Receive Date: 20201217
  Receipt Date: 20201217
  Transmission Date: 20210114
  Serious: Yes (Other)
  Sender: FDA-Public Use
  Company Number: US-GW PHARMA-202012USGW04316

PATIENT

DRUGS (1)
  1. EPIDIOLEX [Suspect]
     Active Substance: CANNABIDIOL
     Indication: PETIT MAL EPILEPSY
     Dosage: 250 MILLIGRAM, BID
     Route: 048
     Dates: start: 20190628

REACTIONS (4)
  - Attention deficit hyperactivity disorder [Not Recovered/Not Resolved]
  - Product use in unapproved indication [Unknown]
  - Depression [Not Recovered/Not Resolved]
  - Self-injurious ideation [Not Recovered/Not Resolved]

NARRATIVE: CASE EVENT DATE: 20201103
